FAERS Safety Report 13151720 (Version 2)
Quarter: 2017Q1

REPORT INFORMATION
  Report Type: Report from Study
  Country: DE (occurrence: DE)
  Receive Date: 20170125
  Receipt Date: 20170206
  Transmission Date: 20170428
  Serious: Yes (Other)
  Sender: FDA-Public Use
  Company Number: DE-JNJFOC-20170122515

PATIENT
  Age: 6 Decade
  Sex: Female

DRUGS (4)
  1. LANTAREL [Concomitant]
     Active Substance: METHOTREXATE SODIUM
     Indication: PERIPHERAL ARTHRITIS
     Route: 065
     Dates: start: 20150901
  2. SIMPONI [Suspect]
     Active Substance: GOLIMUMAB
     Indication: ANKYLOSING SPONDYLITIS
     Route: 058
     Dates: start: 20150901
  3. LANTAREL [Concomitant]
     Active Substance: METHOTREXATE SODIUM
     Indication: ANKYLOSING SPONDYLITIS
     Route: 065
     Dates: start: 20150901
  4. ETORICOXIB [Concomitant]
     Active Substance: ETORICOXIB
     Route: 065
     Dates: start: 20150101

REACTIONS (1)
  - Respiratory tract infection [Recovered/Resolved]

NARRATIVE: CASE EVENT DATE: 20161208
